FAERS Safety Report 5763691-9 (Version None)
Quarter: 2008Q2

REPORT INFORMATION
  Report Type: 
  Country: None (occurrence: None)
  Receive Date: 20080610
  Receipt Date: 20080602
  Transmission Date: 20081010
  Serious: Yes (Hospitalization)
  Sender: FDA-Public Use
  Company Number: FR-BRISTOL-MYERS SQUIBB COMPANY-14220792

PATIENT
  Age: 59 Year
  Sex: Male

DRUGS (6)
  1. GLUCOPHAGE [Suspect]
     Route: 048
     Dates: start: 20080301, end: 20080510
  2. AVANDIA [Suspect]
     Route: 048
     Dates: start: 20080301, end: 20080510
  3. BACTRIM [Concomitant]
  4. ZELITREX [Concomitant]
  5. FLUDARA [Concomitant]
     Indication: CHRONIC LYMPHOCYTIC LEUKAEMIA
     Dosage: ALSO ADMINISTERED ON 7-MAY-2008
     Dates: start: 20080506
  6. ENDOXAN [Concomitant]
     Indication: CHRONIC LYMPHOCYTIC LEUKAEMIA
     Dosage: ALSO ADMINISTERED ON 7-MAY-2008
     Dates: start: 20080506

REACTIONS (2)
  - METABOLIC ACIDOSIS [None]
  - RENAL FAILURE ACUTE [None]
